FAERS Safety Report 15918907 (Version 1)
Quarter: 2019Q1

REPORT INFORMATION
  Report Type: Spontaneous
  Country: CN (occurrence: CN)
  Receive Date: 20190205
  Receipt Date: 20190205
  Transmission Date: 20190417
  Serious: Yes (Other)
  Sender: FDA-Public Use
  Company Number: CN-BAYER-2019-020475

PATIENT
  Age: 57 Year
  Sex: Female
  Weight: 69 kg

DRUGS (7)
  1. SHEN MAI ZHU SHE YE [Suspect]
     Active Substance: HERBALS
     Indication: DRUG THERAPY
     Dosage: 100 MG, QD
     Route: 041
     Dates: start: 20181203, end: 20181211
  2. INSULIN [Suspect]
     Active Substance: INSULIN NOS
     Indication: DRUG THERAPY
     Dosage: 4 DF, QD
     Route: 041
     Dates: start: 20181210, end: 20181211
  3. BAYASPIRIN 100 MG [Suspect]
     Active Substance: ASPIRIN
     Indication: PLATELET AGGREGATION INHIBITION
     Dosage: 100 MG, QD
     Route: 048
     Dates: start: 20181207, end: 20181211
  4. LOXONIN [Suspect]
     Active Substance: LOXOPROFEN SODIUM
     Indication: PYREXIA
     Dosage: 60 MG, QD
     Route: 041
     Dates: start: 20181209, end: 20181211
  5. EUTHYROX [Concomitant]
     Active Substance: LEVOTHYROXINE SODIUM
  6. ROSUVASTATIN. [Suspect]
     Active Substance: ROSUVASTATIN
     Indication: LIPIDS ABNORMAL
     Dosage: 10 MG, QD
     Route: 048
     Dates: start: 20181207, end: 20181211
  7. GINATON [Suspect]
     Active Substance: GINKGO
     Indication: CARDIOVASCULAR DISORDER
     Dosage: 5 DF, QD
     Route: 041
     Dates: start: 20181203, end: 20181211

REACTIONS (4)
  - Dermatitis [Recovering/Resolving]
  - Rash [None]
  - Pharyngeal oedema [None]
  - Hypersensitivity [Recovering/Resolving]

NARRATIVE: CASE EVENT DATE: 20181210
